FAERS Safety Report 6174609-1 (Version None)
Quarter: 2009Q2

REPORT INFORMATION
  Report Type: 
  Country: None (occurrence: None)
  Receive Date: 20090430
  Receipt Date: 20080815
  Transmission Date: 20091009
  Serious: No
  Sender: FDA-Public Use
  Company Number: US-ASTRAZENECA-2008UW16762

PATIENT
  Age: 83 Year
  Sex: Female

DRUGS (2)
  1. NEXIUM [Suspect]
     Indication: DYSPEPSIA
     Dosage: 40MG
     Route: 048
     Dates: start: 20080716
  2. METFORMIN HCL [Concomitant]

REACTIONS (2)
  - DRY EYE [None]
  - DRY MOUTH [None]
